FAERS Safety Report 25575933 (Version 1)
Quarter: 2025Q3

REPORT INFORMATION
  Report Type: Spontaneous
  Country: EU (occurrence: EU)
  Receive Date: 20250718
  Receipt Date: 20250718
  Transmission Date: 20251021
  Serious: Yes (Hospitalization)
  Sender: LEO PHARM
  Company Number: EU-LEO Pharma-381389

PATIENT
  Sex: Female

DRUGS (1)
  1. ENSTILAR [Suspect]
     Active Substance: BETAMETHASONE DIPROPIONATE\CALCIPOTRIENE HYDRATE
     Indication: Product used for unknown indication
     Dates: start: 202506

REACTIONS (3)
  - Blood pressure increased [Unknown]
  - Insomnia [Unknown]
  - Product use issue [Unknown]
